FAERS Safety Report 6633765-9 (Version None)
Quarter: 2010Q1

REPORT INFORMATION
  Report Type: 
  Country: None (occurrence: None)
  Receive Date: 20100315
  Receipt Date: 20100305
  Transmission Date: 20100710
  Serious: Yes (Hospitalization)
  Sender: FDA-Public Use
  Company Number: 197890

PATIENT
  Age: 66 Year
  Sex: Female
  Weight: 74 kg

DRUGS (8)
  1. AVONEX [Suspect]
     Indication: MULTIPLE SCLEROSIS
     Route: 030
     Dates: start: 19970101, end: 20030101
  2. AVONEX [Suspect]
     Route: 030
     Dates: start: 20030101, end: 20040504
  3. AVONEX [Suspect]
     Route: 030
     Dates: start: 20100224
  4. SYNTHROID [Concomitant]
     Indication: HYPERTHYROIDISM
  5. PAXIL [Concomitant]
     Indication: DEPRESSION
  6. MEDICATION (NOS) [Concomitant]
     Indication: MUSCLE SPASTICITY
     Dates: start: 20040301
  7. AMANTADINE HCL [Concomitant]
     Indication: DRUG USE FOR UNKNOWN INDICATION
  8. COUMADIN [Concomitant]
     Indication: DRUG USE FOR UNKNOWN INDICATION

REACTIONS (8)
  - BREAST CANCER [None]
  - CHOLELITHIASIS [None]
  - DECREASED APPETITE [None]
  - HEADACHE [None]
  - NAUSEA [None]
  - POST PROCEDURAL HAEMATOMA [None]
  - PULMONARY EMBOLISM [None]
  - VOMITING [None]
